FAERS Safety Report 13847070 (Version 9)
Quarter: 2022Q1

REPORT INFORMATION
  Report Type: Spontaneous
  Country: JP (occurrence: JP)
  Receive Date: 20170808
  Receipt Date: 20220323
  Transmission Date: 20220424
  Serious: Yes (Other)
  Sender: FDA-Public Use
  Company Number: JP-SANOFI-2017SA088609

PATIENT
  Age: 11 Year
  Sex: Female
  Weight: 19.8 kg

DRUGS (25)
  1. SABRIL [Suspect]
     Active Substance: VIGABATRIN
     Indication: Infantile spasms
     Dosage: 28.2 MG/KG/DAY (600MG/DAY), BID
     Route: 048
     Dates: start: 20161022, end: 20161025
  2. SABRIL [Suspect]
     Active Substance: VIGABATRIN
     Dosage: UNK UNK, BID
     Route: 048
     Dates: start: 20161026, end: 20161029
  3. SABRIL [Suspect]
     Active Substance: VIGABATRIN
     Dosage: 500 MG, QD
     Route: 048
     Dates: start: 20161021, end: 20170118
  4. SABRIL [Suspect]
     Active Substance: VIGABATRIN
     Dosage: 84.7 MG/KG/DAY (1500 MG/DAY), BID
     Route: 048
     Dates: start: 20161030, end: 20161102
  5. SABRIL [Suspect]
     Active Substance: VIGABATRIN
     Dosage: 84.7 MG/KG/DAY (1500 MG/DAY), BID
     Route: 048
     Dates: start: 20161030, end: 20161102
  6. SABRIL [Suspect]
     Active Substance: VIGABATRIN
     Dosage: 113 MG/KG/DAY (2000 MG/DAY), BID
     Route: 048
     Dates: start: 20161103, end: 20161106
  7. SABRIL [Suspect]
     Active Substance: VIGABATRIN
     Dosage: 113 MG/KG/DAY (2000 MG/DAY), BID
     Route: 048
     Dates: start: 20161103, end: 20161106
  8. SABRIL [Suspect]
     Active Substance: VIGABATRIN
     Dosage: 141.2 MG/KG/DAY (2500 MG/DAY), BID
     Route: 048
     Dates: start: 20161107, end: 20161110
  9. SABRIL [Suspect]
     Active Substance: VIGABATRIN
     Dosage: 148.9 MG/KG/DAY (2800 MG/DAY), BID
     Route: 048
     Dates: start: 20161111, end: 20161117
  10. SABRIL [Suspect]
     Active Substance: VIGABATRIN
     Dosage: UNK UNK, BID
     Route: 048
     Dates: start: 20161118, end: 20161212
  11. SABRIL [Suspect]
     Active Substance: VIGABATRIN
     Dosage: 132.3 MG/KG/DAY (2500 MG/DAY), BID
     Route: 048
     Dates: start: 20161213, end: 20170118
  12. SABRIL [Suspect]
     Active Substance: VIGABATRIN
     Dosage: 104.7 MG/KG/DAY (2000 MG/DAY), BID
     Route: 048
     Dates: start: 20170119, end: 20170223
  13. SABRIL [Suspect]
     Active Substance: VIGABATRIN
     Dosage: 75.8 MG/KG/DAY (1500 MG/DAY), BID
     Route: 048
     Dates: start: 20170224, end: 20170302
  14. SABRIL [Suspect]
     Active Substance: VIGABATRIN
     Dosage: 50.5 MG/KG/DAY, (1000 MG/DAY), BID
     Route: 048
     Dates: start: 20170303, end: 20170323
  15. SABRIL [Suspect]
     Active Substance: VIGABATRIN
     Dosage: 55.5 MG/KG/DAY (110 MG/DAY), BID
     Route: 048
     Dates: start: 20170324, end: 20170330
  16. SABRIL [Suspect]
     Active Substance: VIGABATRIN
     Dosage: 25 MG/KG/DAY (500 MG/DAY), BID
     Route: 048
     Dates: start: 20170331, end: 20170601
  17. SABRIL [Suspect]
     Active Substance: VIGABATRIN
     Dosage: 12.1 MG/KG/DAY (250 MG/DAY), BID
     Route: 048
     Dates: start: 20170602, end: 20170613
  18. SABRIL [Suspect]
     Active Substance: VIGABATRIN
     Dosage: 6.2 MG/KG/DAY (125 MG/DAY), BID
     Route: 048
     Dates: start: 20170614, end: 20170621
  19. SABRIL [Suspect]
     Active Substance: VIGABATRIN
     Dosage: 3.1 MG/KG/DAY (62 MG/DAY), BID
     Route: 048
     Dates: start: 20170622, end: 20170629
  20. SABRIL [Suspect]
     Active Substance: VIGABATRIN
     Dosage: 31.2 MG/KG/DAY (625 MG/DAY), BID
     Route: 048
     Dates: start: 20170630, end: 20170725
  21. SABRIL [Suspect]
     Active Substance: VIGABATRIN
     Dosage: 31.5 MG/KG/DAY (630 MG/DAY), BID
     Route: 048
     Dates: start: 20170726
  22. VALPROATE SODIUM [Concomitant]
     Active Substance: VALPROATE SODIUM
     Indication: Infantile spasms
     Dosage: 400 MG, QD
     Route: 048
  23. PHENOBARBITAL [Concomitant]
     Active Substance: PHENOBARBITAL
     Indication: Infantile spasms
     Dosage: 60 MG, QD
     Route: 048
  24. TAURINE [Concomitant]
     Active Substance: TAURINE
     Indication: Product used for unknown indication
     Dosage: UNK
     Route: 065
  25. NITRAZEPAM [Concomitant]
     Active Substance: NITRAZEPAM
     Indication: Infantile spasms
     Dosage: 1 MG, QD
     Route: 048

REACTIONS (5)
  - Retinal function test abnormal [Recovered/Resolved]
  - Rhinitis allergic [Not Recovered/Not Resolved]
  - Retinogram abnormal [Recovering/Resolving]
  - Visual field defect [Unknown]
  - Insomnia [Recovered/Resolved]

NARRATIVE: CASE EVENT DATE: 20170101
